FAERS Safety Report 7594470 (Version 3)
Quarter: 2014Q1

REPORT INFORMATION
  Report Type: Spontaneous
  Country: US (occurrence: US)
  Receive Date: 20100920
  Receipt Date: 20140115
  Transmission Date: 20141002
  Serious: Yes (Other)
  Sender: FDA-Public Use
  Company Number: US-BAYER-201033829NA

PATIENT
  Age: 27 Year
  Sex: Female
  Weight: 86 kg

DRUGS (11)
  1. YAZ [Suspect]
     Indication: ORAL CONTRACEPTION
     Dosage: UNK UNK, UNK
     Route: 048
     Dates: start: 200107, end: 200612
  2. YASMIN [Suspect]
     Indication: ORAL CONTRACEPTION
     Dosage: UNK UNK, UNK
     Route: 048
     Dates: start: 200107, end: 200612
  3. OCELLA [Suspect]
     Indication: ORAL CONTRACEPTION
     Dosage: UNK UNK, UNK
     Route: 048
     Dates: start: 200107, end: 200612
  4. MIRALAX [Concomitant]
     Indication: CONSTIPATION
     Dosage: UNK UNK, QD
     Dates: start: 200310, end: 200407
  5. FIBER [Concomitant]
     Indication: CONSTIPATION
     Dosage: UNK UNK, BID
     Dates: start: 200310, end: 200407
  6. ZELNORM [Concomitant]
     Indication: CONSTIPATION
     Dosage: UNK UNK, BID
     Dates: start: 200401, end: 200408
  7. NEXIUM [Concomitant]
     Indication: DYSPEPSIA
     Dosage: UNK UNK, QD
     Dates: start: 200401, end: 200407
  8. DICYCLOMINE [Concomitant]
     Dosage: 20 MG, TID
     Route: 048
     Dates: start: 20040308
  9. HYDROCODONE W/APAP [Concomitant]
     Dosage: UNK
     Route: 048
     Dates: start: 20040308
  10. PROMETHAZINE [Concomitant]
     Dosage: 25 MG, UNK
     Route: 048
     Dates: start: 20040331
  11. HYOSCYAMINE SULFATE [Concomitant]
     Indication: MUSCLE SPASMS
     Dosage: 0.125 MG, UNK
     Route: 048
     Dates: start: 20040503

REACTIONS (5)
  - Gallbladder disorder [None]
  - Pulmonary embolism [Unknown]
  - Deep vein thrombosis [Unknown]
  - Cholecystitis chronic [None]
  - Biliary dyskinesia [None]
